FAERS Safety Report 6401732-6 (Version None)
Quarter: 2009Q4

REPORT INFORMATION
  Report Type: 
  Country: None (occurrence: None)
  Receive Date: 20091009
  Receipt Date: 20091009
  Transmission Date: 20100525
  Serious: Yes (Hospitalization)
  Sender: FDA-Public Use
  Company Number: None

PATIENT
  Sex: Male
  Weight: 123.7 kg

DRUGS (2)
  1. CISPLATIN [Suspect]
     Dosage: 165 MG
  2. VINORELBINE TARTRATE [Suspect]
     Dosage: 66 MG

REACTIONS (8)
  - ANAEMIA [None]
  - HYPOTENSION [None]
  - MUCOSAL INFLAMMATION [None]
  - NEUTROPENIA [None]
  - ORAL CANDIDIASIS [None]
  - PYREXIA [None]
  - RESPIRATORY ARREST [None]
  - TACHYCARDIA [None]
